FAERS Safety Report 11130298 (Version 1)
Quarter: 2015Q2

REPORT INFORMATION
  Report Type: Spontaneous
  Country: DE (occurrence: DE)
  Receive Date: 20150522
  Receipt Date: 20150522
  Transmission Date: 20150821
  Serious: Yes (Hospitalization)
  Sender: FDA-Public Use
  Company Number: DE-BRISTOL-MYERS SQUIBB COMPANY-BMS-2015-025318

PATIENT
  Age: 75 Year
  Sex: Female
  Weight: 97 kg

DRUGS (1)
  1. ELIQUIS [Suspect]
     Active Substance: APIXABAN
     Indication: ARRHYTHMIA
     Dosage: 5 MG, BID
     Route: 065
     Dates: start: 20150310, end: 20150417

REACTIONS (4)
  - Myasthenia gravis [Recovering/Resolving]
  - Mouth swelling [Recovering/Resolving]
  - Dysarthria [Recovering/Resolving]
  - Aspiration [Recovering/Resolving]

NARRATIVE: CASE EVENT DATE: 20150320
